FAERS Safety Report 18502377 (Version 2)
Quarter: 2021Q1

REPORT INFORMATION
  Report Type: Spontaneous
  Country: US (occurrence: US)
  Receive Date: 20201113
  Receipt Date: 20210125
  Transmission Date: 20210419
  Serious: Yes (Other)
  Sender: FDA-Public Use
  Company Number: US-009507513-2011USA006547

PATIENT
  Age: 56 Year
  Sex: Female
  Weight: 85.71 kg

DRUGS (5)
  1. FOSAMAX [Suspect]
     Active Substance: ALENDRONATE SODIUM
     Indication: OSTEOPOROSIS
  2. FOSAMAX [Suspect]
     Active Substance: ALENDRONATE SODIUM
     Indication: OSTEOARTHRITIS
     Dosage: UNK
     Route: 065
     Dates: end: 2020
  3. HUMIRA [Suspect]
     Active Substance: ADALIMUMAB
     Indication: PSORIATIC ARTHROPATHY
  4. HUMIRA [Suspect]
     Active Substance: ADALIMUMAB
     Indication: RHEUMATOID ARTHRITIS
     Dosage: STRENGTH: 40 MILLIGRAM/0.4 MILLILITER, 40 MILLIGRAMS, 1 IN 2 WEEKS
     Route: 058
     Dates: start: 2017
  5. VITAMIN D (UNSPECIFIED) [Concomitant]
     Active Substance: VITAMIN D NOS
     Dosage: UNK

REACTIONS (8)
  - Adverse event [Unknown]
  - Myalgia [Recovered/Resolved]
  - Product use in unapproved indication [Unknown]
  - Foot deformity [Recovered/Resolved]
  - Pain [Recovered/Resolved]
  - Foot fracture [Recovered/Resolved]
  - Osteoporosis [Unknown]
  - Osteoarthritis [Unknown]

NARRATIVE: CASE EVENT DATE: 202005
